FAERS Safety Report 14545239 (Version 1)
Quarter: 2018Q1

REPORT INFORMATION
  Report Type: Spontaneous
  Country: ES (occurrence: ES)
  Receive Date: 20180218
  Receipt Date: 20180218
  Transmission Date: 20180509
  Serious: Yes (Death, Hospitalization)
  Sender: FDA-Public Use
  Company Number: ES-TEVA-2018-ES-856878

PATIENT
  Age: 62 Year
  Sex: Female

DRUGS (3)
  1. FENTANILO TD [Concomitant]
     Dosage: 50 MG
     Route: 062
     Dates: start: 20170214
  2. ETOPOSIDE. [Suspect]
     Active Substance: ETOPOSIDE
     Indication: NEUROENDOCRINE TUMOUR
     Dosage: 150 MG (2? CYCLE) (2? CYCLE)
     Dates: start: 20170403, end: 20170403
  3. CISPLATINO [Suspect]
     Active Substance: CISPLATIN
     Indication: NEUROENDOCRINE TUMOUR
     Dosage: 150 MG (2? CYCLE)
     Dates: start: 20170403, end: 20170403

REACTIONS (3)
  - Colitis [Fatal]
  - Distributive shock [Fatal]
  - Pancreatitis acute [Fatal]

NARRATIVE: CASE EVENT DATE: 20170411
